FAERS Safety Report 9302375 (Version 1)
Quarter: 2013Q2

REPORT INFORMATION
  Report Type: Spontaneous
  Country: AU (occurrence: None)
  Receive Date: 20130517
  Receipt Date: 20130517
  Transmission Date: 20140414
  Serious: Yes (Hospitalization)
  Sender: FDA-Public Use
  Company Number: ACET20130012

PATIENT
  Age: 28 Year
  Sex: Female

DRUGS (1)
  1. QPAP INFANTS DROPS [Suspect]
     Indication: PRODUCT USED FOR UNKNOWN INDICATION
     Dosage: 4000 MG, 1000 MG (1 G) QID AS NEEDED, ORAL
     Route: 048

REACTIONS (4)
  - Vomiting [None]
  - Abdominal pain [None]
  - Diarrhoea [None]
  - Metabolic acidosis [None]
